FAERS Safety Report 5390451-3 (Version None)
Quarter: 2007Q3

REPORT INFORMATION
  Report Type: 
  Country: None (occurrence: None)
  Receive Date: 20070718
  Receipt Date: 20060626
  Transmission Date: 20080115
  Serious: No
  Sender: FDA-Public Use
  Company Number: US-KINGPHARMUSA00001-K200600825

PATIENT

DRUGS (12)
  1. LEVOXYL [Suspect]
     Indication: HYPOTHYROIDISM
     Dosage: 56 MCG, QD
     Route: 048
     Dates: start: 19990201
  2. LEVOXYL [Suspect]
     Dosage: 88 MCG, QD
     Route: 048
  3. LEVOXYL [Suspect]
     Dosage: 100 MCG, QD
     Route: 048
  4. LEVOXYL [Suspect]
     Dosage: 125 MCG, QD
     Route: 048
  5. LEVOXYL [Suspect]
     Dosage: 112 MCG, QD
     Route: 048
     Dates: start: 20060506, end: 20060501
  6. LEVOXYL [Suspect]
     Dosage: 56 MCG, QD
     Route: 048
     Dates: start: 20060501, end: 20060501
  7. LEVOXYL [Suspect]
     Dosage: 42 MCG, QD
     Route: 048
     Dates: start: 20060501, end: 20060501
  8. LEVOXYL [Suspect]
     Dosage: 36.75 MCG, QD
     Route: 048
     Dates: start: 20060501, end: 20060501
  9. LEVOXYL [Suspect]
     Dosage: 100 MCG, QD
     Route: 048
     Dates: start: 20060501
  10. TEGRETOL [Concomitant]
  11. LORAZEPAM [Concomitant]
  12. FLONASE [Concomitant]

REACTIONS (7)
  - CHILLS [None]
  - FATIGUE [None]
  - INSOMNIA [None]
  - IRRITABILITY [None]
  - NAUSEA [None]
  - NERVOUSNESS [None]
  - PALPITATIONS [None]
